FAERS Safety Report 12662330 (Version 1)
Quarter: 2016Q3

REPORT INFORMATION
  Report Type: Spontaneous
  Country: BR (occurrence: BR)
  Receive Date: 20160817
  Receipt Date: 20160817
  Transmission Date: 20161109
  Serious: Yes (Other)
  Sender: FDA-Public Use
  Company Number: BR-ALLERGAN-1665696US

PATIENT
  Age: 7 Decade
  Sex: Female

DRUGS (3)
  1. OZURDEX [Suspect]
     Active Substance: DEXAMETHASONE
     Indication: DIABETIC RETINAL OEDEMA
     Dosage: 0.7 MG, SINGLE
     Route: 031
     Dates: start: 20160811, end: 20160811
  2. DORMONID [Concomitant]
     Active Substance: MIDAZOLAM MALEATE
     Indication: SEDATIVE THERAPY
     Dosage: 7.5 MG, UNK
     Route: 042
     Dates: start: 20160811, end: 20160811
  3. FENTANYL. [Concomitant]
     Active Substance: FENTANYL
     Indication: SEDATIVE THERAPY
     Dosage: 100 ?G, UNK
     Route: 042
     Dates: start: 20160811, end: 20160811

REACTIONS (2)
  - Complication of device insertion [Unknown]
  - Eye pain [Unknown]

NARRATIVE: CASE EVENT DATE: 20160811
